FAERS Safety Report 17689008 (Version 7)
Quarter: 2021Q2

REPORT INFORMATION
  Report Type: Spontaneous
  Country: US (occurrence: US)
  Receive Date: 20200421
  Receipt Date: 20210601
  Transmission Date: 20210716
  Serious: No
  Sender: FDA-Public Use
  Company Number: US-VERTEX PHARMACEUTICALS-2020-004716

PATIENT
  Age: 33 Year
  Sex: Female
  Weight: 57 kg

DRUGS (28)
  1. PROZAC [Concomitant]
     Active Substance: FLUOXETINE HYDROCHLORIDE
  2. CREON [Concomitant]
     Active Substance: PANCRELIPASE AMYLASE\PANCRELIPASE LIPASE\PANCRELIPASE PROTEASE
  3. NOVOLOG [Concomitant]
     Active Substance: INSULIN ASPART
  4. INSULIN [Concomitant]
     Active Substance: INSULIN NOS
  5. FLONASE ALLERGY RELIEF [Concomitant]
     Active Substance: FLUTICASONE PROPIONATE
     Dosage: 50 MICROGRAM/ ACTUATION
     Route: 045
  6. HYPERSAL [Concomitant]
     Active Substance: SODIUM CHLORIDE
  7. SUMATRIPTAN. [Concomitant]
     Active Substance: SUMATRIPTAN
  8. HUMALOG [Concomitant]
     Active Substance: INSULIN LISPRO
  9. ADDERALL [Concomitant]
     Active Substance: AMPHETAMINE ASPARTATE\AMPHETAMINE SULFATE\DEXTROAMPHETAMINE SACCHARATE\DEXTROAMPHETAMINE SULFATE
     Dosage: 20 MG
  10. ZESTRIL [Concomitant]
     Active Substance: LISINOPRIL
  11. TRINTELLIX [Concomitant]
     Active Substance: VORTIOXETINE HYDROBROMIDE
  12. FLORINEF ACETATE [Concomitant]
     Active Substance: FLUDROCORTISONE ACETATE
  13. PERFOROMIST [Concomitant]
     Active Substance: FORMOTEROL FUMARATE DIHYDRATE
  14. PAMELOR [Concomitant]
     Active Substance: NORTRIPTYLINE HYDROCHLORIDE
  15. AMBIEN CR [Concomitant]
     Active Substance: ZOLPIDEM TARTRATE
  16. PULMICORT TURBUHALER [Concomitant]
     Active Substance: BUDESONIDE
  17. ADDERALL [Concomitant]
     Active Substance: AMPHETAMINE ASPARTATE\AMPHETAMINE SULFATE\DEXTROAMPHETAMINE SACCHARATE\DEXTROAMPHETAMINE SULFATE
     Dosage: 30 MG
  18. XOPENEX [Concomitant]
     Active Substance: LEVALBUTEROL HYDROCHLORIDE
  19. DOLOPHINE [Concomitant]
     Active Substance: METHADONE HYDROCHLORIDE
  20. PULMOZYME [Concomitant]
     Active Substance: DORNASE ALFA
  21. FERROUS SULFATE. [Concomitant]
     Active Substance: FERROUS SULFATE
  22. NEURONTIN [Concomitant]
     Active Substance: GABAPENTIN
  23. ZYRTEC [Concomitant]
     Active Substance: CETIRIZINE HYDROCHLORIDE
  24. INSULIN GLARGINE [Concomitant]
     Active Substance: INSULIN GLARGINE
  25. TRIKAFTA [Suspect]
     Active Substance: ELEXACAFTOR\IVACAFTOR\TEZACAFTOR
     Indication: CYSTIC FIBROSIS
     Dosage: 2 TABS (100MG ELEXACAFTOR/50MG TEZACAFTOR/75MG IVACAFTOR) AM AND 1 TAB (150MG IVACAFTOR) PM, BID
     Route: 048
     Dates: start: 20191031
  26. NARCAN [Concomitant]
     Active Substance: NALOXONE HYDROCHLORIDE
     Dosage: 4 MG/ACTUATION
     Route: 045
  27. PRILOSEC [Concomitant]
     Active Substance: OMEPRAZOLE MAGNESIUM
  28. OCEAN SALINE NASAL SPRAY [Concomitant]
     Active Substance: SODIUM CHLORIDE
     Dosage: 0.65 %
     Route: 045

REACTIONS (3)
  - Depressed mood [Unknown]
  - Fatigue [Unknown]
  - Weight increased [Recovering/Resolving]

NARRATIVE: CASE EVENT DATE: 202006
